FAERS Safety Report 9409505 (Version 1)
Quarter: 2013Q3

REPORT INFORMATION
  Report Type: Spontaneous
  Country: SE (occurrence: SE)
  Receive Date: 20130719
  Receipt Date: 20130719
  Transmission Date: 20140515
  Serious: Yes (Hospitalization, Other)
  Sender: FDA-Public Use
  Company Number: SE-PFIZER INC-2013208008

PATIENT
  Age: 52 Year
  Sex: Female

DRUGS (2)
  1. DETRUSITOL [Suspect]
     Dosage: 1 MG, UNK
     Dates: start: 2003, end: 201305
  2. TOLTERODINE SANDOZ [Suspect]
     Dosage: 4 MG, UNK
     Dates: start: 2003

REACTIONS (4)
  - Local swelling [Recovered/Resolved]
  - Productive cough [Recovered/Resolved]
  - Joint swelling [Recovered/Resolved]
  - Weight increased [Recovered/Resolved]
